FAERS Safety Report 22172287 (Version 1)
Quarter: 2023Q2

REPORT INFORMATION
  Report Type: Spontaneous
  Country: US (occurrence: None)
  Receive Date: 20230403
  Receipt Date: 20230403
  Transmission Date: 20230722
  Serious: No
  Sender: FDA-Public Use
  Company Number: None

PATIENT
  Age: 72 Year
  Sex: Female
  Weight: 92.08 kg

DRUGS (13)
  1. LENALIDOMIDE [Suspect]
     Active Substance: LENALIDOMIDE
     Indication: Plasma cell myeloma
     Dosage: FREQUENCY : DAILY;?
     Route: 048
  2. ACETAMINOPHEN [Concomitant]
  3. CEIRIZINE [Concomitant]
  4. DEXAMETHASONE [Concomitant]
  5. GAMOTIDINE [Concomitant]
  6. FLONASE [Concomitant]
  7. LOVENOX [Concomitant]
  8. ONDANSETRON [Concomitant]
  9. PANTOPRAZOLE [Concomitant]
  10. SODIUM CHLORIDE [Concomitant]
  11. SYNTHROID [Concomitant]
  12. VALIUM [Concomitant]
  13. VELCADE [Concomitant]

REACTIONS (1)
  - Hospice care [None]
